FAERS Safety Report 6940037-1 (Version None)
Quarter: 2010Q3

REPORT INFORMATION
  Report Type: 
  Country: None (occurrence: None)
  Receive Date: 20100825
  Receipt Date: 20100823
  Transmission Date: 20110219
  Serious: Yes (Other)
  Sender: FDA-Public Use
  Company Number: US-ASTRAZENECA-2006UW07937

PATIENT
  Age: 14366 Day
  Sex: Female
  Weight: 129.3 kg

DRUGS (24)
  1. SEROQUEL [Suspect]
     Indication: DEPRESSION
     Route: 048
     Dates: start: 19990101, end: 20080101
  2. SEROQUEL [Suspect]
     Indication: BIPOLAR DISORDER
     Route: 048
     Dates: start: 19990101, end: 20080101
  3. SEROQUEL [Suspect]
     Indication: SCHIZOPHRENIA
     Route: 048
     Dates: start: 19990101, end: 20080101
  4. SEROQUEL [Suspect]
     Dosage: DOSE 25 MG TO 300 MG
     Route: 048
     Dates: start: 19990101
  5. SEROQUEL [Suspect]
     Dosage: DOSE 25 MG TO 300 MG
     Route: 048
     Dates: start: 19990101
  6. SEROQUEL [Suspect]
     Dosage: DOSE 25 MG TO 300 MG
     Route: 048
     Dates: start: 19990101
  7. SEROQUEL [Suspect]
     Dosage: 25 TO 100 MG
     Route: 048
     Dates: start: 20041006, end: 20050504
  8. SEROQUEL [Suspect]
     Dosage: 25 TO 100 MG
     Route: 048
     Dates: start: 20041006, end: 20050504
  9. SEROQUEL [Suspect]
     Dosage: 25 TO 100 MG
     Route: 048
     Dates: start: 20041006, end: 20050504
  10. SEROQUEL [Suspect]
     Dosage: 100 MG  TO 300 MG
     Route: 048
     Dates: start: 20021213, end: 20071001
  11. SEROQUEL [Suspect]
     Dosage: 100 MG  TO 300 MG
     Route: 048
     Dates: start: 20021213, end: 20071001
  12. SEROQUEL [Suspect]
     Dosage: 100 MG  TO 300 MG
     Route: 048
     Dates: start: 20021213, end: 20071001
  13. ABILIFY [Concomitant]
     Dates: start: 20000101, end: 20080101
  14. PRAVASTATIN [Concomitant]
     Dosage: DAILY
  15. ASPIRIN [Concomitant]
     Dosage: DAILY
  16. ZOLOFT [Concomitant]
     Route: 048
  17. ATENOLOL [Concomitant]
     Dosage: DAILY
  18. SYNTHROID [Concomitant]
     Route: 048
  19. LIPITOR [Concomitant]
     Route: 048
  20. ACETAMINOPHEN [Concomitant]
     Dosage: 1 GRAIN EVERY FOUR HOURS
     Route: 048
  21. FERROUS SULFATE [Concomitant]
  22. COLACE [Concomitant]
  23. GLUCOPHAGE [Concomitant]
  24. NORVASC [Concomitant]
     Indication: BLOOD PRESSURE
     Route: 048

REACTIONS (8)
  - BLOOD CHOLESTEROL INCREASED [None]
  - DIABETIC COMPLICATION [None]
  - EYE DISORDER [None]
  - GASTROINTESTINAL HAEMORRHAGE [None]
  - HYPERGLYCAEMIA [None]
  - HYPERLIPIDAEMIA [None]
  - OBESITY [None]
  - TYPE 2 DIABETES MELLITUS [None]
